FAERS Safety Report 4817523-3 (Version None)
Quarter: 2005Q4

REPORT INFORMATION
  Report Type: 
  Country: None (occurrence: None)
  Receive Date: 20051101
  Receipt Date: 20051025
  Transmission Date: 20060501
  Serious: Yes (Hospitalization)
  Sender: FDA-Public Use
  Company Number: JP-MERCK-0510USA09296

PATIENT
  Age: 61 Year
  Sex: Female

DRUGS (7)
  1. PRIMAXIN [Suspect]
     Indication: PANCREATITIS
     Route: 042
  2. NAFAMOSTAT MESYLATE [Concomitant]
     Indication: PANCREATITIS
     Route: 042
  3. REMINARON [Concomitant]
     Indication: PANCREATITIS
     Route: 042
  4. MIRACLID [Concomitant]
     Indication: PANCREATITIS
     Route: 042
  5. SANDOSTATIN [Concomitant]
     Indication: PANCREATITIS
     Route: 058
  6. PENTCILLIN [Concomitant]
     Indication: PANCREATITIS
     Route: 042
  7. PRODIF [Concomitant]
     Indication: PANCREATITIS
     Route: 042

REACTIONS (2)
  - LIVER DISORDER [None]
  - PANCREATITIS [None]
